FAERS Safety Report 22350572 (Version 1)
Quarter: 2023Q2

REPORT INFORMATION
  Report Type: Spontaneous
  Country: US (occurrence: None)
  Receive Date: 20230521
  Receipt Date: 20230521
  Transmission Date: 20230721
  Serious: Yes (Life-Threatening, Other)
  Sender: FDA-Public Use
  Company Number: None

PATIENT
  Age: 76 Year
  Sex: Male
  Weight: 126.45 kg

DRUGS (8)
  1. DILTIAZEM HYDROCHLORIDE [Suspect]
     Active Substance: DILTIAZEM HYDROCHLORIDE
     Indication: Hypertension
     Dosage: FREQUENCY : DAILY;?
     Route: 048
     Dates: start: 20230516, end: 20230516
  2. LOSARTAN AND HYDROCHLOROTHIAZIDE [Concomitant]
     Active Substance: HYDROCHLOROTHIAZIDE\LOSARTAN POTASSIUM
  3. ACETAMINOPHEN\CODEINE PHOSPHATE [Concomitant]
     Active Substance: ACETAMINOPHEN\CODEINE PHOSPHATE
  4. Claritin generic [Concomitant]
  5. Fluticazone generic [Concomitant]
  6. VITAMIN D3 [Concomitant]
     Active Substance: CHOLECALCIFEROL
  7. Ultima replenisher no sugar electrolyte powder [Concomitant]
  8. MCT oil [Concomitant]

REACTIONS (3)
  - Blood pressure increased [None]
  - Dyspnoea [None]
  - Suspected product quality issue [None]

NARRATIVE: CASE EVENT DATE: 20230516
